FAERS Safety Report 9891230 (Version 1)
Quarter: 2014Q1

REPORT INFORMATION
  Report Type: Spontaneous
  Country: US (occurrence: None)
  Receive Date: 20140211
  Receipt Date: 20140211
  Transmission Date: 20141002
  Serious: Yes (Disabling)
  Sender: FDA-Public Use
  Company Number: None

PATIENT
  Age: 45 Year
  Sex: Female
  Weight: 65.77 kg

DRUGS (1)
  1. WAL-FEX [Suspect]
     Indication: MULTIPLE ALLERGIES
     Route: 048
     Dates: start: 20140201, end: 20140203

REACTIONS (5)
  - Nausea [None]
  - Decreased appetite [None]
  - Vertigo [None]
  - Dizziness [None]
  - Abdominal discomfort [None]
